FAERS Safety Report 16446295 (Version 3)
Quarter: 2019Q3

REPORT INFORMATION
  Report Type: Spontaneous
  Country: US (occurrence: US)
  Receive Date: 20190618
  Receipt Date: 20190718
  Transmission Date: 20191004
  Serious: Yes (Death, Hospitalization, Other)
  Sender: FDA-Public Use
  Company Number: US-ASTRAZENECA-2018SF14854

PATIENT
  Age: 843 Month
  Sex: Female

DRUGS (49)
  1. NEXIUM [Suspect]
     Active Substance: ESOMEPRAZOLE MAGNESIUM
     Indication: GASTROOESOPHAGEAL REFLUX DISEASE
     Route: 048
     Dates: start: 20130213
  2. NOVOLOG [Concomitant]
     Active Substance: INSULIN ASPART
  3. CLOPIDOGREL [Concomitant]
     Active Substance: CLOPIDOGREL BISULFATE
  4. BENZONATATE. [Concomitant]
     Active Substance: BENZONATATE
  5. CRESTOR [Concomitant]
     Active Substance: ROSUVASTATIN CALCIUM
  6. METOPROLOL. [Concomitant]
     Active Substance: METOPROLOL
  7. TYLENOL [Concomitant]
     Active Substance: ACETAMINOPHEN
  8. NEXIUM [Suspect]
     Active Substance: ESOMEPRAZOLE MAGNESIUM
     Indication: GASTROOESOPHAGEAL REFLUX DISEASE
     Route: 048
     Dates: start: 20100129, end: 20140728
  9. LASIX [Concomitant]
     Active Substance: FUROSEMIDE
  10. NITROGLYCERINE [Concomitant]
     Active Substance: NITROGLYCERIN
  11. LEVAQUIN [Concomitant]
     Active Substance: LEVOFLOXACIN
  12. FUROSEMIDE. [Concomitant]
     Active Substance: FUROSEMIDE
  13. COLACE [Concomitant]
     Active Substance: DOCUSATE SODIUM
  14. NEXIUM [Suspect]
     Active Substance: ESOMEPRAZOLE MAGNESIUM
     Indication: GASTROOESOPHAGEAL REFLUX DISEASE
     Route: 048
     Dates: start: 20120209
  15. HYDROCHLOROTHIAZIDE. [Concomitant]
     Active Substance: HYDROCHLOROTHIAZIDE
  16. SINGULAIR [Concomitant]
     Active Substance: MONTELUKAST SODIUM
  17. BENADRYL [Concomitant]
     Active Substance: DIPHENHYDRAMINE HYDROCHLORIDE
  18. MORPHINE [Concomitant]
     Active Substance: MORPHINE
  19. DILTIAZEM. [Concomitant]
     Active Substance: DILTIAZEM
  20. DIGOXIN. [Concomitant]
     Active Substance: DIGOXIN
  21. PREDNISOLONE. [Concomitant]
     Active Substance: PREDNISOLONE
  22. DUONEB [Concomitant]
     Active Substance: ALBUTEROL SULFATE\IPRATROPIUM BROMIDE
  23. SEVELAMER [Concomitant]
     Active Substance: SEVELAMER
  24. PROTONIX [Suspect]
     Active Substance: PANTOPRAZOLE SODIUM
     Indication: GASTROOESOPHAGEAL REFLUX DISEASE
     Route: 065
     Dates: start: 2000, end: 2009
  25. COREG [Concomitant]
     Active Substance: CARVEDILOL
  26. ZYMAR [Concomitant]
     Active Substance: GATIFLOXACIN
  27. WARFARIN [Concomitant]
     Active Substance: WARFARIN
  28. NEXIUM [Suspect]
     Active Substance: ESOMEPRAZOLE MAGNESIUM
     Indication: GASTROOESOPHAGEAL REFLUX DISEASE
     Route: 048
     Dates: start: 20101122
  29. XIBROM [Concomitant]
     Active Substance: BROMFENAC SODIUM
  30. ALPHAGAN P [Concomitant]
     Active Substance: BRIMONIDINE TARTRATE
  31. BRIMONIDINE [Concomitant]
     Active Substance: BRIMONIDINE TARTRATE
  32. HECTOROL [Concomitant]
     Active Substance: DOXERCALCIFEROL
  33. NEXIUM [Suspect]
     Active Substance: ESOMEPRAZOLE MAGNESIUM
     Indication: GASTROOESOPHAGEAL REFLUX DISEASE
     Route: 048
     Dates: start: 20090304, end: 201501
  34. NEXIUM 24HR [Suspect]
     Active Substance: ESOMEPRAZOLE MAGNESIUM
     Indication: GASTROOESOPHAGEAL REFLUX DISEASE
     Route: 048
     Dates: start: 2009, end: 201501
  35. PRILOSEC [Suspect]
     Active Substance: OMEPRAZOLE MAGNESIUM
     Route: 048
  36. PLAVIX [Concomitant]
     Active Substance: CLOPIDOGREL BISULFATE
  37. ASPIRIN. [Concomitant]
     Active Substance: ASPIRIN
  38. XALATAN [Concomitant]
     Active Substance: LATANOPROST
  39. FLONASE [Concomitant]
     Active Substance: FLUTICASONE PROPIONATE
  40. ANGIOMAX [Concomitant]
     Active Substance: BIVALIRUDIN
  41. ZOCOR [Concomitant]
     Active Substance: SIMVASTATIN
  42. LANTUS [Concomitant]
     Active Substance: INSULIN GLARGINE
  43. INSULIN [Concomitant]
     Active Substance: INSULIN NOS
  44. DORZOLAMIDE [Concomitant]
     Active Substance: DORZOLAMIDE
  45. NUCYNTA [Concomitant]
     Active Substance: TAPENTADOL HYDROCHLORIDE
  46. HUMALOG [Concomitant]
     Active Substance: INSULIN LISPRO
  47. CHOLECALCIFEROL [Concomitant]
     Active Substance: CHOLECALCIFEROL
  48. PULMICORT TURBUHALER [Concomitant]
     Active Substance: BUDESONIDE
  49. RENVELA [Concomitant]
     Active Substance: SEVELAMER CARBONATE

REACTIONS (6)
  - Acute kidney injury [Unknown]
  - End stage renal disease [Unknown]
  - Renal failure [Unknown]
  - Renal injury [Unknown]
  - Nephrogenic anaemia [Unknown]
  - Chronic kidney disease [Unknown]

NARRATIVE: CASE EVENT DATE: 201207
